FAERS Safety Report 6028038-1 (Version None)
Quarter: 2008Q4

REPORT INFORMATION
  Report Type: 
  Country: None (occurrence: None)
  Receive Date: 20081231
  Receipt Date: 20081222
  Transmission Date: 20090506
  Serious: Yes (Hospitalization)
  Sender: FDA-Public Use
  Company Number: GXKR2008NL12218

PATIENT
  Sex: Female

DRUGS (1)
  1. TIMOLOL MALEATE [Suspect]
     Indication: GLAUCOMA
     Dosage: 1 DF, QD, OPTHALMIC
     Route: 047

REACTIONS (1)
  - CATARACT [None]
